FAERS Safety Report 6007789-9 (Version None)
Quarter: 2008Q4

REPORT INFORMATION
  Report Type: 
  Country: None (occurrence: None)
  Receive Date: 20081217
  Receipt Date: 20080609
  Transmission Date: 20090506
  Serious: No
  Sender: FDA-Public Use
  Company Number: US-ASTRAZENECA-2008UW11541

PATIENT
  Age: 84 Year
  Sex: Female
  Weight: 47.6 kg

DRUGS (4)
  1. CRESTOR [Suspect]
     Indication: BLOOD CHOLESTEROL INCREASED
     Route: 048
  2. SYNTHROID [Concomitant]
  3. ASPIRIN [Concomitant]
  4. CALCIUM [Concomitant]

REACTIONS (5)
  - ASTHENIA [None]
  - BALANCE DISORDER [None]
  - FATIGUE [None]
  - MUSCLE SPASMS [None]
  - THYROID FUNCTION TEST ABNORMAL [None]
